FAERS Safety Report 6090568-4 (Version None)
Quarter: 2009Q1

REPORT INFORMATION
  Report Type: 
  Country: None (occurrence: None)
  Receive Date: 20090224
  Receipt Date: 20090120
  Transmission Date: 20090719
  Serious: No
  Sender: FDA-Public Use
  Company Number: US-ABBOTT-09P-163-0499009-00

PATIENT
  Sex: Male
  Weight: 72.64 kg

DRUGS (3)
  1. SIMCOR [Suspect]
     Indication: LOW DENSITY LIPOPROTEIN INCREASED
     Dosage: 500/20
     Dates: start: 20081221, end: 20090120
  2. VASOTEC [Concomitant]
     Indication: EJECTION FRACTION ABNORMAL
     Dates: start: 20080101
  3. METOPROLOL [Concomitant]
     Indication: CORONARY ARTERY STENOSIS
     Dosage: UNKNOWN
     Dates: start: 20080101

REACTIONS (1)
  - ANGINA PECTORIS [None]
